FAERS Safety Report 9465589 (Version 1)
Quarter: 2013Q3

REPORT INFORMATION
  Report Type: Spontaneous
  Country: US (occurrence: US)
  Receive Date: 20130820
  Receipt Date: 20130820
  Transmission Date: 20140515
  Serious: No
  Sender: FDA-Public Use
  Company Number: US-009507513-1307USA016918

PATIENT
  Sex: 0

DRUGS (1)
  1. ETONOGESTREL IMPLANT- UNKNOWN [Suspect]
     Dosage: UNK
     Route: 059
     Dates: start: 2011

REACTIONS (2)
  - Device deployment issue [Unknown]
  - Device difficult to use [Unknown]
